FAERS Safety Report 6078457-2 (Version None)
Quarter: 2009Q1

REPORT INFORMATION
  Report Type: 
  Country: None (occurrence: None)
  Receive Date: 20090212
  Receipt Date: 20090212
  Transmission Date: 20090719
  Serious: Yes (Other)
  Sender: FDA-Public Use
  Company Number: None

PATIENT
  Age: 25 Year
  Sex: Female
  Weight: 63.5036 kg

DRUGS (1)
  1. ORTHO TRI-CYCLEN LO [Suspect]
     Indication: CONTRACEPTION
     Dosage: USUAL - 1 MONTH CYCLE 1 PER DAY PO
     Route: 048
     Dates: start: 20080401, end: 20080402

REACTIONS (1)
  - HYPERSENSITIVITY [None]
